FAERS Safety Report 16764506 (Version 10)
Quarter: 2021Q2

REPORT INFORMATION
  Report Type: Report from Study
  Country: ES (occurrence: ES)
  Receive Date: 20190902
  Receipt Date: 20210618
  Transmission Date: 20210716
  Serious: Yes (Life-Threatening, Other)
  Sender: FDA-Public Use
  Company Number: ES-ROCHE-2388774

PATIENT
  Age: 66 Year
  Sex: Female
  Weight: 63.3 kg

DRUGS (39)
  1. PERTUZUMAB. [Suspect]
     Active Substance: PERTUZUMAB
     Indication: HER2 POSITIVE BREAST CANCER
     Dosage: LOADING DOSE
     Route: 042
     Dates: start: 20190702
  2. DEXCLORFENIRAMINA [Concomitant]
     Active Substance: DEXCHLORPHENIRAMINE
     Dates: start: 20190723, end: 20190723
  3. METRONIDAZOLE. [Concomitant]
     Active Substance: METRONIDAZOLE
     Indication: GASTRIC INFECTION
     Dates: start: 20190922, end: 20190925
  4. CIPROFLOXACIN. [Concomitant]
     Active Substance: CIPROFLOXACIN
     Indication: PYREXIA
     Dates: start: 20190913, end: 20190923
  5. DEXAMETHASONE. [Concomitant]
     Active Substance: DEXAMETHASONE
     Route: 042
     Dates: start: 20190723, end: 20190723
  6. RAMIPRIL. [Concomitant]
     Active Substance: RAMIPRIL
     Route: 048
     Dates: start: 20190807
  7. POLARAMINE [Concomitant]
     Active Substance: DEXCHLORPHENIRAMINE MALEATE
     Dates: start: 20190716, end: 20190723
  8. FOSAPREPITANT [Concomitant]
     Active Substance: FOSAPREPITANT
     Indication: PREMEDICATION
     Dates: start: 20190430, end: 20190711
  9. DOXORUBICIN [Suspect]
     Active Substance: DOXORUBICIN
     Indication: HER2 POSITIVE BREAST CANCER
     Dosage: DATE OF MOST RECENT DOSE OF DOXORUBICIN (99 MG) PRIOR TO AE ONSET 11/JUN/2019
     Route: 042
     Dates: start: 20190430
  10. CYCLOPHOSPHAMIDE. [Suspect]
     Active Substance: CYCLOPHOSPHAMIDE
     Indication: HER2 POSITIVE BREAST CANCER
     Dosage: DATE OF MOST RECENT DOSE OF CYCLOPHOSPHAMIDE (990 MG) PRIOR TO AE ONSET: 11/JUN/2019.
     Route: 042
     Dates: start: 20190430
  11. CIPROFLOXACIN. [Concomitant]
     Active Substance: CIPROFLOXACIN
     Indication: URINARY TRACT INFECTION
     Dates: start: 20190730, end: 20190802
  12. FLUOXETINE [Concomitant]
     Active Substance: FLUOXETINE HYDROCHLORIDE
     Indication: DEPRESSION
     Dates: start: 20190702
  13. METAMIZOLE [Concomitant]
     Active Substance: METAMIZOLE
     Indication: ARTHRALGIA
     Route: 048
     Dates: start: 20190528
  14. ROSUVASTATIN. [Concomitant]
     Active Substance: ROSUVASTATIN
     Indication: HYPERTENSION
     Dates: start: 20200219
  15. DIAZEPAM. [Concomitant]
     Active Substance: DIAZEPAM
     Indication: INSOMNIA
     Route: 048
     Dates: start: 201904
  16. TRASTUZUMAB. [Suspect]
     Active Substance: TRASTUZUMAB
     Dosage: 6 MG/KG AS MAINTENANCE DOSE, 8MG/KG LOADING DOSE?4 CYCLE?DATE OF MOST RECENT DOSE OF TRASTUZUMAB (39
     Route: 042
     Dates: start: 20190723
  17. DEXAMETHASONE. [Concomitant]
     Active Substance: DEXAMETHASONE
     Indication: CHEMOTHERAPY SIDE EFFECT PROPHYLAXIS
     Route: 042
     Dates: start: 20190430, end: 20190723
  18. DEXAMETHASONE. [Concomitant]
     Active Substance: DEXAMETHASONE
     Route: 042
     Dates: start: 20190709, end: 20190709
  19. PARACETAMOL [Concomitant]
     Active Substance: ACETAMINOPHEN
     Indication: POST PROCEDURAL INFECTION
     Dates: start: 20190729, end: 20190729
  20. PARACETAMOL [Concomitant]
     Active Substance: ACETAMINOPHEN
     Indication: PYREXIA
  21. MOXIFLOXACINO [Concomitant]
     Active Substance: MOXIFLOXACIN HYDROCHLORIDE
     Indication: POST PROCEDURAL INFECTION
     Dates: start: 20190926, end: 20191009
  22. BEMIPARINA SODICA [Concomitant]
     Indication: POST PROCEDURAL INFECTION
     Dates: start: 20190926, end: 20191009
  23. MAGNESIUM [Concomitant]
     Active Substance: MAGNESIUM
     Indication: HYPOMAGNESAEMIA
     Dates: start: 20190806
  24. DEXCLORFENIRAMINA [Concomitant]
     Active Substance: DEXCHLORPHENIRAMINE
     Indication: NAUSEA
     Dates: start: 20190716, end: 20190716
  25. AMOXCILLIN [Concomitant]
     Active Substance: AMOXICILLIN
     Indication: PYREXIA
     Dates: start: 20190915, end: 20190923
  26. OMEPRAZOLE. [Concomitant]
     Active Substance: OMEPRAZOLE
     Indication: PROPHYLAXIS
     Dates: start: 20190528
  27. POTASSIUM [Concomitant]
     Active Substance: POTASSIUM
     Indication: BLOOD POTASSIUM DECREASED
     Dates: start: 20190806
  28. RANITIDINE. [Concomitant]
     Active Substance: RANITIDINE
     Indication: PREMEDICATION
     Dates: start: 20190702, end: 20190723
  29. VANCOMICINA [Concomitant]
     Active Substance: VANCOMYCIN
     Indication: GASTRIC INFECTION
     Dates: start: 20190926, end: 20191003
  30. ALPRAZOLAM. [Concomitant]
     Active Substance: ALPRAZOLAM
     Indication: DEPRESSION
     Dates: start: 20190708
  31. CEFUROXIME. [Concomitant]
     Active Substance: CEFUROXIME
     Indication: POST PROCEDURAL INFECTION
     Dates: start: 20190829, end: 20190908
  32. PACLITAXEL. [Suspect]
     Active Substance: PACLITAXEL
     Indication: HER2 POSITIVE BREAST CANCER
     Dosage: FOR 12 CONTINUOUS WEEKS?DATE OF MOST RECENT DOSE OF PACLITAXEL (132 MG) PRIOR TO AE ONSET::23/JUL/20
     Route: 042
     Dates: start: 20190702
  33. TRASTUZUMAB. [Suspect]
     Active Substance: TRASTUZUMAB
     Indication: HER2 POSITIVE BREAST CANCER
     Route: 041
     Dates: start: 20190702
  34. PLACEBO [Suspect]
     Active Substance: UNSPECIFIED INGREDIENT
     Indication: HER2 POSITIVE BREAST CANCER
     Dosage: FOR 4 CYCLES?DATE OF MOST RECENT DOSE OF PLACEBO RECEIVED ON PRIOR TO AE ONSET: 23/JUL/2019
     Route: 042
     Dates: start: 20190430
  35. PERTUZUMAB. [Suspect]
     Active Substance: PERTUZUMAB
     Dosage: 420 MG AS MAINTENANCE DOSE ?FOR 4 CYCLE?DATE OF MOST RECENT DOSE OF PERTUZUMAB (420 MG) PRIOR TO AE
     Route: 042
     Dates: start: 20190723
  36. DEXAMETHASONE. [Concomitant]
     Active Substance: DEXAMETHASONE
     Route: 042
     Dates: start: 20190716, end: 20190716
  37. CALCIUM ACETATE. [Concomitant]
     Active Substance: CALCIUM ACETATE
     Dates: start: 20190806
  38. CEFDITOREN [Concomitant]
     Active Substance: CEFDITOREN
     Indication: GASTRITIS BACTERIAL
     Dates: start: 20190923, end: 20191005
  39. FUROSEMIDE. [Concomitant]
     Active Substance: FUROSEMIDE
     Dates: start: 20190807

REACTIONS (2)
  - Mitral valve incompetence [Not Recovered/Not Resolved]
  - Cardiac failure congestive [Not Recovered/Not Resolved]

NARRATIVE: CASE EVENT DATE: 20190807
